FAERS Safety Report 6763544-3 (Version None)
Quarter: 2010Q2

REPORT INFORMATION
  Report Type: 
  Country: None (occurrence: None)
  Receive Date: 20100610
  Receipt Date: 20100528
  Transmission Date: 20101027
  Serious: Yes (Other)
  Sender: FDA-Public Use
  Company Number: PHHY2010US32428

PATIENT
  Sex: Female
  Weight: 77.098 kg

DRUGS (8)
  1. RECLAST [Suspect]
     Indication: OSTEOPOROSIS POSTMENOPAUSAL
     Dosage: 5 MG, ONCE
     Dates: start: 20100428
  2. ATENOLOL [Concomitant]
     Dosage: 50 MG, BID
  3. ISOSORBIDE [Concomitant]
     Dosage: 60 MG, QD
  4. LIPITOR [Concomitant]
     Dosage: 10 MG, QD
  5. DYAZIDE [Concomitant]
     Dosage: 75/50 QD
  6. MIRAPEX [Concomitant]
     Dosage: 0.5 MG, TID
  7. ZETIA [Concomitant]
     Dosage: 10 MG, QD
  8. ATACAND [Concomitant]
     Dosage: 32 MG, QD

REACTIONS (9)
  - BLOOD PRESSURE DECREASED [None]
  - BLOOD URINE PRESENT [None]
  - CHILLS [None]
  - FATIGUE [None]
  - MYALGIA [None]
  - PAIN [None]
  - TREMOR [None]
  - URINARY INCONTINENCE [None]
  - URINARY TRACT INFECTION [None]
